FAERS Safety Report 22720047 (Version 2)
Quarter: 2024Q3

REPORT INFORMATION
  Report Type: Spontaneous
  Country: US (occurrence: US)
  Receive Date: 20230718
  Receipt Date: 20240805
  Transmission Date: 20241016
  Serious: No
  Sender: EVOKE PHARMA
  Company Number: US-EVOKE PHARMA, INC.-2023EVO000098

PATIENT

DRUGS (1)
  1. GIMOTI [Suspect]
     Active Substance: METOCLOPRAMIDE HYDROCHLORIDE
     Indication: Impaired gastric emptying
     Dosage: 15 MILLIGRAM, 1 SPRAY IN ONE NOSTRIL THREE TIMES A DAY 30 MINUTES BEFORE MEALS. DISCARD AFTER 4 WEEK
     Route: 045
     Dates: start: 202305, end: 202305

REACTIONS (3)
  - Acne pustular [Recovering/Resolving]
  - Furuncle [Recovered/Resolved]
  - Pain [Recovering/Resolving]

NARRATIVE: CASE EVENT DATE: 20230501
